FAERS Safety Report 8463986 (Version 4)
Quarter: 2013Q1

REPORT INFORMATION
  Report Type: Spontaneous
  Country: US (occurrence: None)
  Receive Date: 20110315
  Receipt Date: 20121109
  Transmission Date: 20140127
  Serious: Yes (Hospitalization)
  Sender: FDA-Public Use
  Company Number: 2011027811

PATIENT
  Age: 84 Year
  Sex: Female
  Weight: 68.04 kg

DRUGS (26)
  1. HIZENTRA [Suspect]
     Dosage: 7 G 1X/WEEK, INFUSED 35 ML WEEKLY VIA 4 SITES SUBCUTANEOUS
     Dates: start: 20101025
  2. HIZENTRA [Suspect]
  3. HIZENTRA [Suspect]
  4. HIZENTRA [Suspect]
  5. HIZENTRA [Suspect]
     Dosage: 8 G 1X/WEEK, IN 4 SITES OVER 2 HOURS SUBCUTANEOUS
     Route: 058
  6. TIZANIDINE HYDROCHLORIDE [Concomitant]
  7. ALVESCO [Concomitant]
  8. FLUOROURACIL [Concomitant]
  9. BROVANA (OTHER RESPIRATORY SYSTEM PRODUCTS) [Concomitant]
  10. MIRAPEX [Concomitant]
  11. GABAPENTIN [Concomitant]
  12. GLIPIZIDE XL (GLIPIZIDE) [Concomitant]
  13. FENOFIBRATE [Concomitant]
  14. ALBUTEROL (SALBUTAMOL) [Concomitant]
  15. TRIAMTERENE [Concomitant]
  16. VICODIN [Concomitant]
  17. XOPENEX [Concomitant]
  18. FLUTICASONE [Concomitant]
  19. AFRIN [Concomitant]
  20. BUDESONIDE [Concomitant]
  21. PROAIR (SALBUTAMOL SULFATE) [Concomitant]
  22. DIPHENHYDRAMINE [Concomitant]
  23. LMX (LIDOCAINE HYDROCHLORIDE) [Concomitant]
  24. ASPIRIN (ACETYLSALICYLIC ACID) [Concomitant]
  25. CITRACAL D (CITRACAL + D) [Concomitant]
  26. POTASSIUM CHLORIDE ER (POTASSIUM CHLORIDE) [Concomitant]

REACTIONS (4)
  - PNEUMONIA [None]
  - DRUG INEFFECTIVE [None]
  - DYSPNOEA [None]
  - FATIGUE [None]
